FAERS Safety Report 13858545 (Version 1)
Quarter: 2017Q3

REPORT INFORMATION
  Report Type: Spontaneous
  Country: FR (occurrence: FR)
  Receive Date: 20170811
  Receipt Date: 20170811
  Transmission Date: 20171127
  Serious: Yes (Hospitalization)
  Sender: FDA-Public Use
  Company Number: FR-SA-2017SA140255

PATIENT
  Age: 48 Year
  Sex: Male

DRUGS (2)
  1. RIFADINE [Suspect]
     Active Substance: RIFAMPIN
     Indication: FURUNCLE
     Route: 048
     Dates: start: 20170630, end: 20170701
  2. TETRALYSAL [Suspect]
     Active Substance: LYMECYCLINE
     Indication: FURUNCLE
     Route: 048
     Dates: start: 20170630, end: 20170701

REACTIONS (4)
  - Acute hepatic failure [Not Recovered/Not Resolved]
  - Disseminated intravascular coagulation [Recovered/Resolved]
  - Renal failure [Not Recovered/Not Resolved]
  - Jaundice cholestatic [Not Recovered/Not Resolved]

NARRATIVE: CASE EVENT DATE: 20170701
